FAERS Safety Report 6833022-1 (Version None)
Quarter: 2010Q3

REPORT INFORMATION
  Report Type: 
  Country: None (occurrence: None)
  Receive Date: 20100712
  Receipt Date: 20100605
  Transmission Date: 20110219
  Serious: No
  Sender: FDA-Public Use
  Company Number: US-BIOGENIDEC-2010BI018728

PATIENT
  Age: 32 Year
  Sex: Female

DRUGS (1)
  1. AVONEX [Suspect]
     Indication: MULTIPLE SCLEROSIS
     Route: 030
     Dates: start: 20100302

REACTIONS (6)
  - DEPRESSION [None]
  - EAR PAIN [None]
  - FACIAL PAIN [None]
  - PAIN IN EXTREMITY [None]
  - PAIN IN JAW [None]
  - VISION BLURRED [None]
